FAERS Safety Report 22795386 (Version 5)
Quarter: 2023Q4

REPORT INFORMATION
  Report Type: Spontaneous
  Country: JP (occurrence: JP)
  Receive Date: 20230807
  Receipt Date: 20231207
  Transmission Date: 20240110
  Serious: Yes (Other)
  Sender: FDA-Public Use
  Company Number: JP-ASTRAZENECA-230044879_013120_P_1

PATIENT
  Age: 46 Year
  Sex: Male
  Weight: 57 kg

DRUGS (5)
  1. ABRAXANE [Suspect]
     Active Substance: PACLITAXEL
     Indication: Non-small cell lung cancer
     Dates: start: 20230424, end: 20230612
  2. ABRAXANE [Suspect]
     Active Substance: PACLITAXEL
     Indication: Non-small cell lung cancer stage IV
  3. CARBOPLATIN [Suspect]
     Active Substance: CARBOPLATIN
     Indication: Non-small cell lung cancer
     Dates: start: 20230424, end: 20230605
  4. IMFINZI [Suspect]
     Active Substance: DURVALUMAB
     Indication: Non-small cell lung cancer stage IV
     Dosage: DURVALUMAB (GENETICAL RECOMBINATION):500MG DURVALUMAB:500.0MG
     Route: 041
     Dates: start: 20230424
  5. IMJUDO [Suspect]
     Active Substance: TREMELIMUMAB\TREMELIMUMAB-ACTL
     Indication: Non-small cell lung cancer stage IV
     Dosage: TREMELIMUMAB (GENETICAL RECOMBINATION):25MG TREMELIMUMABACTL: 25.0MG
     Route: 041
     Dates: start: 20230424, end: 20230823

REACTIONS (11)
  - Neutrophil count decreased [Recovered/Resolved]
  - Immune-mediated hypothyroidism [Recovered/Resolved]
  - Arthralgia [Not Recovered/Not Resolved]
  - Malaise [Not Recovered/Not Resolved]
  - Anaemia [Recovered/Resolved]
  - Dysgeusia [Recovering/Resolving]
  - Platelet count decreased [Recovered/Resolved]
  - Aspartate aminotransferase increased [Recovered/Resolved]
  - Alanine aminotransferase increased [Recovered/Resolved]
  - Blood alkaline phosphatase increased [Recovered/Resolved]
  - Blood lactate dehydrogenase increased [Recovered/Resolved]

NARRATIVE: CASE EVENT DATE: 20230508
